FAERS Safety Report 13669223 (Version 1)
Quarter: 2017Q2

REPORT INFORMATION
  Report Type: Spontaneous
  Country: JP (occurrence: JP)
  Receive Date: 20170620
  Receipt Date: 20170620
  Transmission Date: 20170830
  Serious: Yes (Other)
  Sender: FDA-Public Use
  Company Number: JP-MYLANLABS-2017M1036683

PATIENT

DRUGS (14)
  1. ISONIAZID. [Suspect]
     Active Substance: ISONIAZID
     Dosage: 500MG/DAY
     Route: 065
  2. PYRAZINAMIDE. [Suspect]
     Active Substance: PYRAZINAMIDE
     Indication: MENINGITIS TUBERCULOUS
     Dosage: 1.2G/DAY
     Route: 065
  3. RIFAMPICIN [Suspect]
     Active Substance: RIFAMPIN
     Indication: MENINGITIS TUBERCULOUS
     Dosage: 450MG/DAY
     Route: 065
  4. EDARAVONE [Concomitant]
     Active Substance: EDARAVONE
     Indication: CEREBRAL INFARCTION
     Route: 065
  5. ISONIAZID. [Suspect]
     Active Substance: ISONIAZID
     Indication: MENINGITIS TUBERCULOUS
     Dosage: 200MG/DAY; LATER INCREASED TO 300MG/DAY
     Route: 065
  6. STREPTOMYCIN [Suspect]
     Active Substance: STREPTOMYCIN\STREPTOMYCIN SULFATE
     Indication: MENINGITIS TUBERCULOUS
     Dosage: 500MG/DAY
     Route: 065
  7. MEROPENEM. [Concomitant]
     Active Substance: MEROPENEM
     Indication: PRODUCT USED FOR UNKNOWN INDICATION
     Dosage: 6G/DAY
     Route: 065
  8. ISONIAZID. [Suspect]
     Active Substance: ISONIAZID
     Dosage: 300MG/DAY; LATER INCREASED TO 500MG/DAY
     Route: 065
  9. DEXAMETHASONE. [Concomitant]
     Active Substance: DEXAMETHASONE
     Indication: PRODUCT USED FOR UNKNOWN INDICATION
     Dosage: 19.6MG/DAY
     Route: 065
  10. ISONIAZID. [Suspect]
     Active Substance: ISONIAZID
     Dosage: 100MG 3 TIMES /WEEK
     Route: 037
  11. HEPARIN [Concomitant]
     Active Substance: HEPARIN SODIUM
     Indication: CEREBRAL INFARCTION
     Dosage: 10000 UNITS/DAY
     Route: 050
  12. ASPIRIN                            /00002701/ [Concomitant]
     Active Substance: ASPIRIN
     Indication: CEREBRAL INFARCTION
     Dosage: 100MG/DAY
     Route: 065
  13. LEVOFLOXACIN. [Concomitant]
     Active Substance: LEVOFLOXACIN
     Indication: MENINGITIS TUBERCULOUS
     Dosage: 500MG/DAY
     Route: 065
  14. ETHAMBUTOL [Suspect]
     Active Substance: ETHAMBUTOL HYDROCHLORIDE
     Indication: MENINGITIS TUBERCULOUS
     Dosage: 750MG/DAY
     Route: 065

REACTIONS (6)
  - Hypoaesthesia [Unknown]
  - Visual acuity reduced [Unknown]
  - Optic neuropathy [Unknown]
  - Aphasia [Unknown]
  - Maternal exposure during pregnancy [Unknown]
  - Hepatotoxicity [Recovered/Resolved]
